FAERS Safety Report 19849328 (Version 1)
Quarter: 2021Q3

REPORT INFORMATION
  Report Type: Other
  Country: AU (occurrence: AU)
  Receive Date: 20210917
  Receipt Date: 20210917
  Transmission Date: 20211014
  Serious: Yes (Death, Life-Threatening)
  Sender: FDA-Public Use
  Company Number: AU-B.BRAUN MEDICAL INC.-2118509

PATIENT
  Age: 23 Year
  Sex: Male

DRUGS (2)
  1. DEXTROSE INJECTIONS USP 0264?7510?00 0264?7510?20 [Suspect]
     Active Substance: DEXTROSE
     Indication: OVERDOSE
  2. DEXTROSE INJECTIONS USP 0264?7510?00 0264?7510?20 [Suspect]
     Active Substance: DEXTROSE
     Indication: SUICIDAL IDEATION

REACTIONS (1)
  - Drug ineffective for unapproved indication [Fatal]
